FAERS Safety Report 23446992 (Version 1)
Quarter: 2024Q1

REPORT INFORMATION
  Report Type: Spontaneous
  Country: GB (occurrence: GB)
  Receive Date: 20240126
  Receipt Date: 20240126
  Transmission Date: 20240409
  Serious: Yes (Other)
  Sender: FDA-Public Use
  Company Number: None

PATIENT
  Age: 71 Year
  Sex: Male
  Weight: 76 kg

DRUGS (13)
  1. EDOXABAN [Suspect]
     Active Substance: EDOXABAN
     Indication: Product used for unknown indication
     Dosage: 60 MG, QD (TO THIN BLOOD)
     Route: 065
     Dates: start: 20230101, end: 20240119
  2. ALENDRONIC ACID [Concomitant]
     Active Substance: ALENDRONIC ACID
     Indication: Product used for unknown indication
     Dosage: 1 DF, ONCE EVERY 1 WK (ON AN EMPTY STOMACH, WITH PLENT)
     Route: 065
     Dates: start: 20230428
  3. ATORVASTATIN [Concomitant]
     Active Substance: ATORVASTATIN
     Indication: Blood cholesterol
     Dosage: 1 DF, QD (EACH EVENING)
     Route: 065
     Dates: start: 20230428
  4. DOXAZOSIN [Concomitant]
     Active Substance: DOXAZOSIN MESYLATE
     Indication: Blood pressure measurement
     Dosage: 1 DF, QD
     Route: 065
     Dates: start: 20230428
  5. HYDROCORTISONE [Concomitant]
     Active Substance: HYDROCORTISONE
     Indication: Fungal skin infection
     Dosage: UNK (APPLY TO AF)
     Route: 065
     Dates: start: 20231212
  6. LOSARTAN [Concomitant]
     Active Substance: LOSARTAN
     Indication: Blood pressure measurement
     Dosage: 1 DF, QD
     Route: 065
     Dates: start: 20230428
  7. MIRABEGRON [Concomitant]
     Active Substance: MIRABEGRON
     Indication: Hypertonic bladder
     Dosage: 1 DF, QD
     Route: 065
     Dates: start: 20230428
  8. OMEPRAZOLE [Concomitant]
     Active Substance: OMEPRAZOLE
     Indication: Gastrooesophageal reflux disease
     Dosage: 1 DF, QD
     Route: 065
     Dates: start: 20230428
  9. PEPPERMINT OIL [Concomitant]
     Active Substance: PEPPERMINT OIL
     Indication: Product used for unknown indication
     Dosage: 1 DF, TID (BEFORE FOOD)
     Route: 065
     Dates: start: 20231010
  10. RIVAROXABAN [Concomitant]
     Active Substance: RIVAROXABAN
     Indication: Cerebrovascular accident
     Dosage: 1 DF, QD
     Route: 065
     Dates: start: 20240119
  11. ALBUTEROL [Concomitant]
     Active Substance: ALBUTEROL
     Indication: Product used for unknown indication
     Dosage: 2 DF, QID
     Route: 065
     Dates: start: 20230428
  12. SYMBICORT [Concomitant]
     Active Substance: BUDESONIDE\FORMOTEROL FUMARATE DIHYDRATE
     Indication: Product used for unknown indication
     Dosage: 2 DF, BID (PUFFS)
     Route: 055
     Dates: start: 20230428
  13. DILTIAZEM HYDROCHLORIDE [Concomitant]
     Active Substance: DILTIAZEM HYDROCHLORIDE
     Indication: Product used for unknown indication
     Dosage: 1 DF, QD (FOR HEART RHYTHM (THIS IS DILTIA...)
     Route: 065
     Dates: start: 20230428

REACTIONS (2)
  - Brain fog [Recovered/Resolved]
  - Dizziness [Recovered/Resolved]

NARRATIVE: CASE EVENT DATE: 20230101
